FAERS Safety Report 9709037 (Version 1)
Quarter: 2013Q4

REPORT INFORMATION
  Report Type: Spontaneous
  Country: US (occurrence: US)
  Receive Date: 20131125
  Receipt Date: 20131125
  Transmission Date: 20140711
  Serious: Yes (Death, Other)
  Sender: FDA-Public Use
  Company Number: PHHY2013US133219

PATIENT
  Age: 3 Year
  Sex: Female

DRUGS (4)
  1. TEMOZOLOMIDE [Suspect]
     Indication: BRAIN STEM GLIOMA
     Dosage: 90 MG/M2/DAY
     Route: 048
  2. TEMOZOLOMIDE [Suspect]
     Dosage: 75 MG/M2/DAY
     Route: 048
  3. IRINOTECAN [Suspect]
     Indication: BRAIN STEM GLIOMA
     Dosage: 125 MG/M2, UNK
  4. BEVACIZUMAB [Suspect]
     Indication: BRAIN STEM GLIOMA
     Dosage: 15 MG/KG/DOSE
     Route: 048

REACTIONS (4)
  - Death [Fatal]
  - Neutropenia [Unknown]
  - Hypertension [Recovered/Resolved]
  - Drug effect incomplete [Unknown]
